FAERS Safety Report 17962553 (Version 1)
Quarter: 2020Q2

REPORT INFORMATION
  Report Type: Spontaneous
  Country: US (occurrence: US)
  Receive Date: 20200629
  Receipt Date: 20200629
  Transmission Date: 20200714
  Serious: Yes (Hospitalization, Disabling)
  Sender: FDA-Public Use
  Company Number: None

PATIENT
  Age: 23 Year
  Sex: Female
  Weight: 61.23 kg

DRUGS (1)
  1. NEXPLANON [Suspect]
     Active Substance: ETONOGESTREL
     Dates: start: 20180301

REACTIONS (6)
  - Syncope [None]
  - Depression [None]
  - Loss of consciousness [None]
  - Suicide attempt [None]
  - Bacterial vaginosis [None]
  - Amnesia [None]

NARRATIVE: CASE EVENT DATE: 20190101
